FAERS Safety Report 5977400-1 (Version None)
Quarter: 2008Q4

REPORT INFORMATION
  Report Type: 
  Country: None (occurrence: None)
  Receive Date: 20081203
  Receipt Date: 20081127
  Transmission Date: 20090506
  Serious: Yes (Other)
  Sender: FDA-Public Use
  Company Number: PHHY2008DE30066

PATIENT

DRUGS (1)
  1. RASILEZ [Suspect]
     Indication: HYPERTENSION

REACTIONS (3)
  - ABDOMINAL PAIN [None]
  - ANGINA PECTORIS [None]
  - BACK PAIN [None]
